FAERS Safety Report 5657959-4 (Version None)
Quarter: 2008Q1

REPORT INFORMATION
  Report Type: 
  Country: None (occurrence: None)
  Receive Date: 20080305
  Receipt Date: 20080220
  Transmission Date: 20080703
  Serious: Yes (Hospitalization)
  Sender: FDA-Public Use
  Company Number: 100#08#2008-00855

PATIENT
  Age: 37 Year
  Sex: Female

DRUGS (8)
  1. VENLAFAXINE HCL [Suspect]
     Indication: PSYCHIATRIC SYMPTOM
     Dosage: 150 MG
  2. LAMOTRIGINE [Suspect]
     Indication: EPILEPSY
     Dosage: 100 MG EVERY 12 HOURS
  3. CARBAMAZEPINE [Suspect]
     Indication: EPILEPSY
     Dosage: 800 MG AT BREAKFAST AND DINNER AND 400 MG AT LUNCH
  4. PHENOBARBITAL TAB [Concomitant]
  5. LEVETIRACETAM [Concomitant]
  6. ALPRAZOLAM [Concomitant]
  7. MIRTAZAPINE [Concomitant]
  8. PRAVASTATIN [Concomitant]

REACTIONS (15)
  - CONFUSIONAL STATE [None]
  - CONTUSION [None]
  - DEPRESSION [None]
  - DRUG INTERACTION [None]
  - EPILEPSY [None]
  - HEAD INJURY [None]
  - HYPERHIDROSIS [None]
  - HYPERTONIA [None]
  - HYPONATRAEMIA [None]
  - INAPPROPRIATE ANTIDIURETIC HORMONE SECRETION [None]
  - LEUKOCYTOSIS [None]
  - NEUTROPHILIA [None]
  - PALLOR [None]
  - PERIPHERAL COLDNESS [None]
  - SYNCOPE [None]
